FAERS Safety Report 9506018 (Version 1)
Quarter: 2013Q1

REPORT INFORMATION
  Report Type: Spontaneous
  Country: US (occurrence: None)
  Receive Date: 20130201
  Receipt Date: 20130201
  Transmission Date: 20140127
  Serious: No
  Sender: FDA-Public Use
  Company Number: US-010019

PATIENT
  Age: 77 Year
  Sex: Female
  Weight: 50.35 kg

DRUGS (6)
  1. PICOLAX /00362801/ (NOT SPECIFIED) [Suspect]
     Indication: COLONOSCOPY
     Dosage: 1 PKG MIXED IN 5 OUNCES OF WATER AT 3:00PM
     Dates: start: 20121028, end: 20121028
  2. METFORMIN [Concomitant]
  3. GLYBURIDE [Concomitant]
  4. JANUVIA [Concomitant]
  5. LISINOPRIL [Concomitant]
  6. SIMVASTATIN [Concomitant]

REACTIONS (3)
  - Abdominal pain upper [None]
  - Tremor [None]
  - Vomiting [None]
